FAERS Safety Report 12645785 (Version 1)
Quarter: 2016Q3

REPORT INFORMATION
  Report Type: Spontaneous
  Country: US (occurrence: US)
  Receive Date: 20160811
  Receipt Date: 20160811
  Transmission Date: 20161109
  Serious: No
  Sender: FDA-Public Use
  Company Number: US-ENDO PHARMACEUTICALS INC.-2015-005109

PATIENT
  Age: 85 Year
  Sex: Female
  Weight: 72.64 kg

DRUGS (5)
  1. SINGULAIR [Concomitant]
     Active Substance: MONTELUKAST SODIUM
     Indication: HYPERSENSITIVITY
  2. PREDNISONE TABLETS [Suspect]
     Active Substance: PREDNISONE
     Route: 048
  3. PREDNISONE TABLETS [Suspect]
     Active Substance: PREDNISONE
     Route: 048
     Dates: start: 201511
  4. PREMARIN [Concomitant]
     Active Substance: ESTROGENS, CONJUGATED
     Indication: PRODUCT USED FOR UNKNOWN INDICATION
  5. PREDNISONE TABLETS [Suspect]
     Active Substance: PREDNISONE
     Indication: PRODUCT USED FOR UNKNOWN INDICATION
     Route: 048

REACTIONS (8)
  - Unevaluable event [Unknown]
  - Malaise [None]
  - Intentional product use issue [Recovered/Resolved]
  - Hair growth abnormal [Unknown]
  - Energy increased [Unknown]
  - Dry mouth [Unknown]
  - Cough [Unknown]
  - Dyspnoea [Unknown]

NARRATIVE: CASE EVENT DATE: 201412
